FAERS Safety Report 24015655 (Version 1)
Quarter: 2024Q2

REPORT INFORMATION
  Report Type: Spontaneous
  Country: US (occurrence: None)
  Receive Date: 20240626
  Receipt Date: 20240626
  Transmission Date: 20240716
  Serious: Yes (Life-Threatening, Disabling)
  Sender: FDA-Public Use
  Company Number: None

PATIENT
  Age: 69 Year
  Sex: Female
  Weight: 53.52 kg

DRUGS (4)
  1. LEXISCAN [Suspect]
     Active Substance: REGADENOSON
  2. AMOXICILLIN [Suspect]
     Active Substance: AMOXICILLIN
  3. Clavulaorate potassium [Concomitant]
  4. TYLENOL [Concomitant]

REACTIONS (4)
  - Feeling abnormal [None]
  - Taste disorder [None]
  - Product odour abnormal [None]
  - Extrasystoles [None]

NARRATIVE: CASE EVENT DATE: 20240614
